FAERS Safety Report 22119848 (Version 1)
Quarter: 2023Q1

REPORT INFORMATION
  Report Type: Spontaneous
  Country: US (occurrence: None)
  Receive Date: 20230320
  Receipt Date: 20230320
  Transmission Date: 20230418
  Serious: Yes (Hospitalization)
  Sender: FDA-Public Use
  Company Number: None

PATIENT
  Age: 83 Year
  Sex: Female
  Weight: 76.2 kg

DRUGS (19)
  1. RIBOCICLIB [Suspect]
     Active Substance: RIBOCICLIB
     Indication: Breast cancer metastatic
     Dosage: 400 MG DAILY ORAL
     Route: 048
     Dates: start: 20230307, end: 20230314
  2. RIBOCICLIB [Suspect]
     Active Substance: RIBOCICLIB
     Indication: Hormone receptor negative HER2 positive breast cancer
  3. ATORVASTATIN [Concomitant]
     Active Substance: ATORVASTATIN
  4. Carvedilol 12.5 mg BID [Concomitant]
  5. Cholecalciferol 2000 unit capsule once daily [Concomitant]
  6. Metformin 1500 mg AM and 1000 mg PM [Concomitant]
  7. ESCITALOPRAM [Concomitant]
     Active Substance: ESCITALOPRAM OXALATE
  8. Gabapentin 300 mg QAM, NOON and 600 mg QHS [Concomitant]
  9. Insulin Aspart U100: sliding scale TID [Concomitant]
  10. Insulin Glargine U100: 12u QHS [Concomitant]
  11. Metolazone 2.5 mg daily prior to torsemide PRN [Concomitant]
  12. Spironolactone 25 mg QAM [Concomitant]
  13. Torsemide 120 mg BID [Concomitant]
  14. Tramadol 50 mg Q6H PRN [Concomitant]
  15. Warfarin 2.5 mg TUES, 5 mg ALL OTHER DAYS. [Concomitant]
  16. Prochlorperazine 5 mg Q6H PRN nausea [Concomitant]
  17. Ondansetron 8 mg Q8H PRN nausea [Concomitant]
  18. Mag64 DR tablet: 7 QAM, 7 QPM [Concomitant]
  19. Multivitamin once daily [Concomitant]

REACTIONS (4)
  - International normalised ratio increased [None]
  - Lactic acidosis [None]
  - Acute kidney injury [None]
  - Metabolic acidosis [None]

NARRATIVE: CASE EVENT DATE: 20230316
